FAERS Safety Report 4431306-8 (Version None)
Quarter: 2004Q3

REPORT INFORMATION
  Report Type: 
  Country: None (occurrence: None)
  Receive Date: 20040817
  Receipt Date: 20040806
  Transmission Date: 20050211
  Serious: Yes (Hospitalization)
  Sender: FDA-Public Use
  Company Number: 2004227337JP

PATIENT
  Age: 88 Year
  Sex: Male

DRUGS (4)
  1. HALCION [Suspect]
     Indication: INSOMNIA
     Dosage: 0.25 MG DAILY, ORAL
     Route: 048
  2. FAMOTIDINE [Concomitant]
  3. DEPAS (ETIZOLAM) [Concomitant]
  4. MAGNESIUM OXIDE [Concomitant]

REACTIONS (1)
  - MYOCLONIC EPILEPSY [None]
